FAERS Safety Report 24773824 (Version 1)
Quarter: 2024Q4

REPORT INFORMATION
  Report Type: Report from Study
  Country: KR (occurrence: KR)
  Receive Date: 20241225
  Receipt Date: 20241225
  Transmission Date: 20250115
  Serious: Yes (Other)
  Sender: ALEXION PHARMACEUTICALS
  Company Number: KR-ASTRAZENECA-202412GLO016092KR

PATIENT
  Weight: 51.6 kg

DRUGS (10)
  1. OLAPARIB [Suspect]
     Active Substance: OLAPARIB
     Indication: Ovarian cancer
     Dosage: UNK, BID
  2. OLAPARIB [Suspect]
     Active Substance: OLAPARIB
     Dosage: UNK, BID
     Route: 048
  3. OLAPARIB [Suspect]
     Active Substance: OLAPARIB
     Dosage: UNK, BID
  4. OLAPARIB [Suspect]
     Active Substance: OLAPARIB
     Dosage: UNK, BID
     Route: 048
  5. TANTUM [Concomitant]
     Active Substance: BENZYDAMINE HYDROCHLORIDE
     Indication: Aphthous ulcer
     Dosage: UNK
  6. Diclomed [Concomitant]
     Indication: Aphthous ulcer
     Dosage: UNK
  7. PERIDEX [Concomitant]
     Active Substance: CHLORHEXIDINE GLUCONATE
     Dosage: UNK
  8. METOCLOPRAMIDE [Concomitant]
     Active Substance: METOCLOPRAMIDE
  9. BECALM [Concomitant]
     Dosage: UNK
  10. LYRICA [Concomitant]
     Active Substance: PREGABALIN
     Dosage: UNK

REACTIONS (3)
  - Neuropathy peripheral [Recovering/Resolving]
  - Nausea [Recovered/Resolved]
  - Neutropenia [Recovered/Resolved]
